FAERS Safety Report 23583940 (Version 1)
Quarter: 2024Q1

REPORT INFORMATION
  Report Type: Spontaneous
  Country: JP (occurrence: JP)
  Receive Date: 20240301
  Receipt Date: 20240301
  Transmission Date: 20240410
  Serious: Yes (Other)
  Sender: FDA-Public Use
  Company Number: JP-SANDOZ INC.-SDZ2024JP019982

PATIENT
  Age: 64 Year
  Sex: Female

DRUGS (5)
  1. CARBOPLATIN [Suspect]
     Active Substance: CARBOPLATIN
     Dosage: UNK, A TOTAL OF FOUR CYCLES OF SECOND-LINE CHEMOTHERAPY, INCLUDING CARBOPLATIN AND PACLITAXEL
     Route: 065
  2. CARBOPLATIN [Suspect]
     Active Substance: CARBOPLATIN
     Indication: Thymoma
     Dosage: UNK,RECEIVED FOUR CYCLES OF CHEMOTHERAPY INVOLVING CARBOPLATIN AND ETOPOSIDE
     Route: 065
  3. ETOPOSIDE [Suspect]
     Active Substance: ETOPOSIDE
     Dosage: UNK, A TOTAL OF THREE CYCLES OF CHEMOTHERAPY INVOLVING AZACITIDINE AND VENETOCLAX, AND RE-INDUCTION
     Route: 065
  4. ETOPOSIDE [Suspect]
     Active Substance: ETOPOSIDE
     Indication: Thymoma
     Dosage: UNK,RECEIVED FOUR CYCLES OF CHEMOTHERAPY INVOLVING CARBOPLATIN AND ETOPOSIDE
     Route: 065
  5. PACLITAXEL [Suspect]
     Active Substance: PACLITAXEL
     Indication: Thymoma
     Dosage: UNK, A TOTAL OF FOUR CYCLES OF SECOND-LINE CHEMOTHERAPY, INCLUDING CARBOPLATIN AND PACLITAXEL
     Route: 065

REACTIONS (6)
  - Leukaemia [Unknown]
  - Acute myeloid leukaemia [Unknown]
  - Thymoma malignant [Unknown]
  - Metastases to pleura [Unknown]
  - Malignant neoplasm progression [Unknown]
  - Off label use [Unknown]
